FAERS Safety Report 11067960 (Version 2)
Quarter: 2015Q2

REPORT INFORMATION
  Report Type: Report from Study
  Country: US (occurrence: US)
  Receive Date: 20150427
  Receipt Date: 20150610
  Transmission Date: 20150821
  Serious: Yes (Hospitalization, Other)
  Sender: FDA-Public Use
  Company Number: US-ALEXION PHARMACEUTICALS INC.-A201501394

PATIENT

DRUGS (1)
  1. SOLIRIS [Suspect]
     Active Substance: ECULIZUMAB
     Indication: HAEMOLYTIC URAEMIC SYNDROME
     Dosage: UNK
     Route: 042

REACTIONS (9)
  - Haemoglobin decreased [Unknown]
  - Unevaluable event [Unknown]
  - Unevaluable event [Unknown]
  - Blister [Unknown]
  - Ascites [Unknown]
  - Blood creatinine abnormal [Unknown]
  - Oedema peripheral [Unknown]
  - Drug effect incomplete [Unknown]
  - Platelet count abnormal [Unknown]

NARRATIVE: CASE EVENT DATE: 201504
